FAERS Safety Report 5542708-0 (Version None)
Quarter: 2007Q4

REPORT INFORMATION
  Report Type: 
  Country: None (occurrence: None)
  Receive Date: 20071206
  Receipt Date: 20071126
  Transmission Date: 20080405
  Serious: Yes (Hospitalization)
  Sender: FDA-Public Use
  Company Number: 238938K07USA

PATIENT
  Age: 41 Year
  Sex: Female
  Weight: 66.6788 kg

DRUGS (8)
  1. REBIF [Suspect]
     Indication: MULTIPLE SCLEROSIS
     Dosage: 44 MCG, 3 IN 1 WEEKS, SUBCUTANEOUS
     Route: 058
     Dates: start: 20060613
  2. TYLENOL (COTYLENOL) [Concomitant]
  3. NEURONTIN [Concomitant]
  4. BACLOFEN [Concomitant]
  5. LEVOXYL [Concomitant]
  6. ANTIBIOTIC (ANTIBIOTICS) [Concomitant]
  7. METOCLOPRAMIDE (METOCLOPRAMIDE /00041901/) [Concomitant]
  8. PROMETHAZINE [Concomitant]

REACTIONS (7)
  - ABDOMINAL PAIN [None]
  - CANDIDIASIS [None]
  - CHOLELITHIASIS [None]
  - DEHYDRATION [None]
  - DYSGEUSIA [None]
  - THROAT IRRITATION [None]
  - VOMITING [None]
